FAERS Safety Report 5063311-5 (Version None)
Quarter: 2006Q3

REPORT INFORMATION
  Report Type: 
  Country: None (occurrence: None)
  Receive Date: 20060703
  Receipt Date: 20060519
  Transmission Date: 20061208
  Serious: No
  Sender: FDA-Public Use
  Company Number: 2006PV014144

PATIENT
  Age: 64 Year
  Sex: Female
  Weight: 85.2762 kg

DRUGS (6)
  1. SYMLIN [Suspect]
     Indication: DIABETES MELLITUS INSULIN-DEPENDENT
     Dosage: 30 MCG;TID;SC
     Route: 058
     Dates: start: 20060301
  2. LANTUS [Concomitant]
  3. HUMALOG [Concomitant]
  4. COZAAR [Concomitant]
  5. DILTIAZEM HCL [Concomitant]
  6. LIPITOR [Concomitant]

REACTIONS (1)
  - MEDICATION ERROR [None]
